FAERS Safety Report 15835156 (Version 1)
Quarter: 2019Q1

REPORT INFORMATION
  Report Type: Spontaneous
  Country: US (occurrence: US)
  Receive Date: 20190116
  Receipt Date: 20190116
  Transmission Date: 20190417
  Serious: Yes (Hospitalization, Other)
  Sender: FDA-Public Use
  Company Number: US-BEH-2019098417

PATIENT
  Sex: Female
  Weight: 96.15 kg

DRUGS (1)
  1. HIZENTRA [Suspect]
     Active Substance: HUMAN IMMUNOGLOBULIN G
     Indication: IMMUNODEFICIENCY COMMON VARIABLE
     Dosage: 20 G, QOW
     Route: 058
     Dates: start: 20181109

REACTIONS (3)
  - Asthma [Unknown]
  - Weight decreased [Unknown]
  - Chronic obstructive pulmonary disease [Unknown]
